FAERS Safety Report 17177069 (Version 1)
Quarter: 2019Q4

REPORT INFORMATION
  Report Type: Spontaneous
  Country: US (occurrence: US)
  Receive Date: 20191219
  Receipt Date: 20191219
  Transmission Date: 20200122
  Serious: No
  Sender: FDA-Public Use
  Company Number: US-AUROBINDO-AUR-APL-2019-003523

PATIENT

DRUGS (4)
  1. SERTRALINE HYDROCHLORIDE ORAL CONCENTRATE 20 MG/ML [Suspect]
     Active Substance: SERTRALINE HYDROCHLORIDE
     Dosage: 7 MILLIGRAM, DAILY
     Route: 048
  2. SERTRALINE HYDROCHLORIDE ORAL CONCENTRATE 20 MG/ML [Suspect]
     Active Substance: SERTRALINE HYDROCHLORIDE
     Dosage: 6 MILLIGRAM, DAILY
     Route: 048
  3. CELEXA [Concomitant]
     Active Substance: CITALOPRAM HYDROBROMIDE
     Indication: PRODUCT USED FOR UNKNOWN INDICATION
     Route: 065
  4. SERTRALINE HYDROCHLORIDE ORAL CONCENTRATE 20 MG/ML [Suspect]
     Active Substance: SERTRALINE HYDROCHLORIDE
     Indication: DEPRESSION
     Dosage: 6 MILLIGRAM, DAILY
     Route: 048

REACTIONS (5)
  - Feeling abnormal [Unknown]
  - Anxiety [Unknown]
  - Heart rate increased [Unknown]
  - Tremor [Unknown]
  - Fatigue [Unknown]
